FAERS Safety Report 4608458-X (Version None)
Quarter: 2005Q1

REPORT INFORMATION
  Report Type: 
  Country: None (occurrence: None)
  Receive Date: 20050311
  Receipt Date: 20050311
  Transmission Date: 20050727
  Serious: Yes (Hospitalization)
  Sender: FDA-Public Use
  Company Number: None

PATIENT
  Age: 83 Year
  Sex: Female

DRUGS (7)
  1. ZITHROMAX [Suspect]
     Indication: UPPER RESPIRATORY TRACT INFECTION
     Dosage: ORAL 250 MG
     Route: 048
     Dates: start: 20050111, end: 20050115
  2. COUMADIN [Suspect]
     Indication: THROMBOSIS PROPHYLAXIS
     Dosage: ORAL 5.0 MG
     Dates: start: 20040913, end: 20050117
  3. ROBITUSSIN WITH CODEINE [Concomitant]
  4. ADVAIR DISKUS 100/50 [Concomitant]
  5. ATENOLOL [Concomitant]
  6. FELODIPINE [Concomitant]
  7. HYDROCHLOROTHIAZIDE [Concomitant]

REACTIONS (5)
  - ABDOMINAL PAIN [None]
  - COAGULOPATHY [None]
  - CONTUSION [None]
  - HAEMATOMA [None]
  - INTERNATIONAL NORMALISED RATIO INCREASED [None]
